FAERS Safety Report 7214599-3 (Version None)
Quarter: 2011Q1

REPORT INFORMATION
  Report Type: 
  Country: None (occurrence: None)
  Receive Date: 20110104
  Receipt Date: 20110104
  Transmission Date: 20110831
  Serious: No
  Sender: FDA-Public Use
  Company Number: None

PATIENT
  Sex: Female

DRUGS (1)
  1. RITEDOSE ALBUTEROL SULFATE INHAL [Suspect]
     Indication: CHRONIC OBSTRUCTIVE PULMONARY DISEASE

REACTIONS (4)
  - DRUG LABEL CONFUSION [None]
  - NERVOUSNESS [None]
  - DIZZINESS [None]
  - MEDICATION ERROR [None]
